FAERS Safety Report 19839447 (Version 1)
Quarter: 2021Q3

REPORT INFORMATION
  Report Type: Spontaneous
  Country: NL (occurrence: DE)
  Receive Date: 20210916
  Receipt Date: 20210916
  Transmission Date: 20211014
  Serious: Yes (Hospitalization)
  Sender: FDA-Public Use
  Company Number: DE-FRESENIUS KABI-FK202109708

PATIENT
  Age: 59 Year
  Sex: Female
  Weight: 64 kg

DRUGS (7)
  1. RAMIPRIL. [Concomitant]
     Active Substance: RAMIPRIL
     Indication: PRODUCT USED FOR UNKNOWN INDICATION
     Dosage: 5 MG, 1?0?1?0
     Route: 065
  2. METAMIZOLE [Concomitant]
     Active Substance: METAMIZOLE
     Indication: PRODUCT USED FOR UNKNOWN INDICATION
     Dosage: 500 MG, AS REQUIRED
     Route: 065
  3. CARBOPLATIN (MANUFACTURER UNKNOWN) [Suspect]
     Active Substance: CARBOPLATIN
     Indication: PRODUCT USED FOR UNKNOWN INDICATION
     Dosage: PLAN
     Route: 065
  4. METOPROLOL. [Concomitant]
     Active Substance: METOPROLOL
     Indication: PRODUCT USED FOR UNKNOWN INDICATION
     Dosage: 95 MG, 1?0?0?0
     Route: 065
  5. OXYCODONE/NALOXONE [Concomitant]
     Active Substance: NALOXONE HYDROCHLORIDE\OXYCODONE HYDROCHLORIDE
     Indication: PRODUCT USED FOR UNKNOWN INDICATION
     Dosage: 2.5|5 MG, 1?0?1?0
     Route: 065
  6. HYDROCHLOROTHIAZIDE. [Concomitant]
     Active Substance: HYDROCHLOROTHIAZIDE
     Indication: PRODUCT USED FOR UNKNOWN INDICATION
     Dosage: 25 MG, 1?0?0?0
     Route: 065
  7. PACLITAXEL (MANUFACTURER UNKNOWN) [Suspect]
     Active Substance: PACLITAXEL
     Indication: PRODUCT USED FOR UNKNOWN INDICATION
     Dosage: PLAN
     Route: 065

REACTIONS (6)
  - Anaemia [Unknown]
  - Flank pain [Unknown]
  - Condition aggravated [Unknown]
  - Electrocardiogram abnormal [Unknown]
  - Leukopenia [Unknown]
  - Systemic infection [Unknown]

NARRATIVE: CASE EVENT DATE: 20201204
